FAERS Safety Report 16804361 (Version 1)
Quarter: 2019Q3

REPORT INFORMATION
  Report Type: Spontaneous
  Country: US (occurrence: US)
  Receive Date: 20190913
  Receipt Date: 20190913
  Transmission Date: 20191005
  Serious: No
  Sender: FDA-Public Use
  Company Number: US-PFIZER INC-2019393972

PATIENT
  Age: 83 Year
  Sex: Female

DRUGS (1)
  1. IBRANCE [Suspect]
     Active Substance: PALBOCICLIB
     Dosage: 100 MG, CYCLIC (1CAP X21DAYS, THEN 7DAYS OFF)
     Route: 048

REACTIONS (4)
  - Formication [Unknown]
  - Hallucination [Unknown]
  - Anxiety [Unknown]
  - Restlessness [Unknown]
